FAERS Safety Report 17506901 (Version 2)
Quarter: 2020Q1

REPORT INFORMATION
  Report Type: Spontaneous
  Country: US (occurrence: US)
  Receive Date: 20200306
  Receipt Date: 20200323
  Transmission Date: 20200409
  Serious: Yes (Death, Hospitalization)
  Sender: FDA-Public Use
  Company Number: US-KARYOPHARM THERAPEUTICS, INC.-2020KPT000209

PATIENT

DRUGS (1)
  1. XPOVIO [Suspect]
     Active Substance: SELINEXOR
     Indication: PRODUCT USED FOR UNKNOWN INDICATION
     Dosage: 80 MG, WEEKLY
     Route: 048
     Dates: start: 20200217

REACTIONS (3)
  - Pneumonia [Unknown]
  - Influenza [Unknown]
  - Pericardial effusion [Fatal]

NARRATIVE: CASE EVENT DATE: 202002
